FAERS Safety Report 9417412 (Version 2)
Quarter: 2013Q4

REPORT INFORMATION
  Report Type: Spontaneous
  Country: US (occurrence: US)
  Receive Date: 20130724
  Receipt Date: 20131022
  Transmission Date: 20140711
  Serious: No
  Sender: FDA-Public Use
  Company Number: US-BRISTOL-MYERS SQUIBB COMPANY-18852541

PATIENT
  Age: 61 Year
  Sex: Female
  Weight: 62.13 kg

DRUGS (12)
  1. ELIQUIS [Suspect]
     Dates: start: 201304
  2. WARFARIN [Suspect]
  3. AMLODIPINE [Concomitant]
  4. ATARAX [Concomitant]
  5. AMBIEN [Concomitant]
  6. FLUOXETINE [Concomitant]
  7. FUROSEMIDE [Concomitant]
  8. ROPINIROLE [Concomitant]
     Indication: RESTLESS LEGS SYNDROME
  9. PROPAFENONE [Concomitant]
  10. GABAPENTIN [Concomitant]
  11. BACLOFEN [Concomitant]
  12. POTASSIUM CHLORIDE [Concomitant]

REACTIONS (4)
  - Haemorrhage [Unknown]
  - Coagulopathy [Unknown]
  - International normalised ratio increased [Unknown]
  - Contusion [Unknown]
